FAERS Safety Report 8988193 (Version 1)
Quarter: 2012Q4

REPORT INFORMATION
  Report Type: 
  Country: GB (occurrence: GB)
  Receive Date: 20121227
  Receipt Date: 20121227
  Transmission Date: 20130627
  Serious: Yes (Disabling, Other)
  Sender: FDA-Public Use
  Company Number: GB-WATSON-2012-22485

PATIENT
  Age: 66 Year
  Sex: Female
  Weight: 42 kg

DRUGS (4)
  1. ALENDRONATE SODIUM- (UNKNOWN) [Suspect]
     Indication: OSTEOPOROSIS
     Dosage: 70 mg, 1/week
     Route: 048
     Dates: start: 200709, end: 201207
  2. THYROXINE [Concomitant]
     Indication: PRODUCT USED FOR UNKNOWN INDICATION
     Dosage: unknown
     Route: 065
  3. CALCIUM [Concomitant]
     Indication: MEDICAL DIET
     Dosage: unknown
     Route: 065
  4. CO-CODAMOL [Concomitant]
     Indication: PRODUCT USED FOR UNKNOWN INDICATION
     Dosage: unknown
     Route: 065

REACTIONS (3)
  - Back pain [Recovering/Resolving]
  - Sarcoidosis [Recovering/Resolving]
  - Malaise [Unknown]
